FAERS Safety Report 25462812 (Version 2)
Quarter: 2025Q4

REPORT INFORMATION
  Report Type: Spontaneous
  Country: CH (occurrence: CH)
  Receive Date: 20250620
  Receipt Date: 20251002
  Transmission Date: 20260118
  Serious: Yes (Death, Other)
  Sender: MERCK SHARP & DOHME LLC
  Company Number: CH-009507513-2285813

PATIENT
  Age: 73 Year
  Sex: Female

DRUGS (7)
  1. PEMBROLIZUMAB [Suspect]
     Active Substance: PEMBROLIZUMAB
     Indication: Non-small cell lung cancer
     Dosage: 3L; 3 DOSES
     Dates: start: 20250317
  2. PEMBROLIZUMAB [Suspect]
     Active Substance: PEMBROLIZUMAB
     Indication: Non-small cell lung cancer
     Dosage: IN COMBINATION (4 CYCLES)
     Dates: start: 20191211, end: 20200217
  3. PEMBROLIZUMAB [Suspect]
     Active Substance: PEMBROLIZUMAB
     Indication: Non-small cell lung cancer
     Dosage: AS MONOTHERAPY; INTERMITTENT PAUSE OF IMMUNOTHERAPY WITH KEYTRUDA IN CASE OF SUSPECTED IMMUNOTHER...
     Dates: start: 20200309, end: 20210625
  4. PEMBROLIZUMAB [Suspect]
     Active Substance: PEMBROLIZUMAB
     Indication: Non-small cell lung cancer
     Dates: start: 202504
  5. ALIMTA [Suspect]
     Active Substance: PEMETREXED DISODIUM
     Indication: Non-small cell lung cancer stage IV
     Dosage: IN COMBINATION (4 CYCLES)
     Dates: start: 20191211, end: 20200217
  6. CISPLATIN [Suspect]
     Active Substance: CISPLATIN
     Indication: Non-small cell lung cancer stage IV
     Dosage: IN COMBINATION (4 CYCLES)
     Dates: start: 20191211, end: 20200217
  7. DOCETAXEL [Suspect]
     Active Substance: DOCETAXEL
     Indication: Non-small cell lung cancer stage IV
     Dosage: 12 CYCLES
     Dates: start: 20240115, end: 20240617

REACTIONS (4)
  - Death [Fatal]
  - Off label use [Unknown]
  - Malignant neoplasm progression [Unknown]
  - Diarrhoea [Unknown]

NARRATIVE: CASE EVENT DATE: 20240401
